FAERS Safety Report 6793277-9 (Version None)
Quarter: 2010Q2

REPORT INFORMATION
  Report Type: 
  Country: None (occurrence: None)
  Receive Date: 20100624
  Receipt Date: 20091231
  Transmission Date: 20101027
  Serious: Yes (Other)
  Sender: FDA-Public Use
  Company Number: US-MYLANLABS-2009S1018009

PATIENT
  Age: 32 Year
  Sex: Male
  Weight: 68.04 kg

DRUGS (4)
  1. CLOZAPINE [Suspect]
     Indication: SCHIZOPHRENIA
     Route: 048
     Dates: start: 20060101, end: 20091012
  2. CLOZAPINE [Suspect]
     Route: 048
     Dates: start: 20060101, end: 20091012
  3. TRAZODONE HYDROCHLORIDE [Concomitant]
     Route: 048
     Dates: start: 20091011, end: 20091012
  4. LAMICTAL [Concomitant]
     Route: 048
     Dates: start: 20091011, end: 20091012

REACTIONS (2)
  - GRANULOCYTOPENIA [None]
  - LEUKOPENIA [None]
